FAERS Safety Report 9664451 (Version 1)
Quarter: 2013Q4

REPORT INFORMATION
  Report Type: Spontaneous
  Country: GB (occurrence: GB)
  Receive Date: 20131101
  Receipt Date: 20131101
  Transmission Date: 20140711
  Serious: Yes (Hospitalization)
  Sender: FDA-Public Use
  Company Number: GB-AMGEN-GBRSP2013076664

PATIENT
  Age: 74 Year
  Sex: 0

DRUGS (26)
  1. FILGRASTIM [Suspect]
     Indication: PRODUCT USED FOR UNKNOWN INDICATION
     Dosage: UNK
     Route: 058
  2. ALLOPURINOL [Suspect]
     Indication: PRODUCT USED FOR UNKNOWN INDICATION
     Dosage: UNK
     Route: 048
     Dates: start: 20130817, end: 20130902
  3. BENDROFLUMETHIAZIDE [Suspect]
     Indication: PRODUCT USED FOR UNKNOWN INDICATION
     Dosage: UNK
     Route: 048
     Dates: end: 20130831
  4. RITUXIMAB [Suspect]
     Indication: NON-HODGKIN^S LYMPHOMA
     Dosage: UNK
     Route: 041
     Dates: start: 20130805, end: 20130805
  5. AMLODIPINE [Concomitant]
     Dosage: 10 MG, QD
     Route: 048
     Dates: end: 20130831
  6. ASPIRIN [Concomitant]
     Dosage: UNK
     Route: 048
  7. ATORVASTATIN [Concomitant]
     Dosage: UNK
     Route: 048
  8. BENZYDAMINE [Concomitant]
     Dosage: UNK
     Route: 061
  9. CLOPIDOGREL [Concomitant]
     Dosage: UNK
     Route: 048
  10. CYCLOPHOSPHAMIDE [Concomitant]
     Indication: NON-HODGKIN^S LYMPHOMA
     Dosage: UNK
     Route: 041
     Dates: start: 20130805, end: 20130805
  11. DOXORUBICIN [Concomitant]
     Indication: NON-HODGKIN^S LYMPHOMA
     Dosage: UNK
     Route: 041
     Dates: start: 20130805, end: 20130805
  12. ENOXAPARIN [Concomitant]
     Dosage: UNK
  13. FLUCONAZOLE [Concomitant]
     Dosage: UNK
     Route: 048
  14. LANSOPRAZOLE [Concomitant]
     Dosage: UNK
     Route: 048
     Dates: end: 20130831
  15. LOSARTAN [Concomitant]
     Dosage: UNK
     Route: 048
  16. MEROPENEM [Concomitant]
     Dosage: UNK
     Route: 040
  17. METFORMIN [Concomitant]
     Dosage: UNK
     Route: 048
  18. METHOTREXATE [Concomitant]
     Dosage: UNK
     Route: 039
     Dates: start: 20130815, end: 20130815
  19. METOCLOPRAMIDE [Concomitant]
     Dosage: UNK
     Route: 048
  20. MOXONIDINE [Concomitant]
     Dosage: UNK
     Route: 048
     Dates: end: 20130831
  21. NYSTATIN [Concomitant]
     Dosage: UNK
     Route: 061
  22. PARACETAMOL [Concomitant]
     Dosage: UNK
     Route: 048
  23. PIPERACILLIN AND TAZOBACTAM [Concomitant]
     Dosage: UNK
     Route: 040
  24. RANITIDINE [Concomitant]
     Dosage: UNK
     Route: 050
     Dates: start: 20130831
  25. ONCOVIN [Concomitant]
     Indication: NON-HODGKIN^S LYMPHOMA
     Dosage: UNK
     Route: 041
     Dates: start: 20130805, end: 20130805
  26. PREDNISOLONE [Concomitant]
     Indication: NON-HODGKIN^S LYMPHOMA
     Dosage: UNK

REACTIONS (13)
  - Pneumonia [Unknown]
  - Skin ulcer [Unknown]
  - Abscess [Unknown]
  - Acanthosis [Unknown]
  - Extravasation blood [Unknown]
  - Livedo reticularis [Unknown]
  - Mucous membrane disorder [Unknown]
  - Nodule [Unknown]
  - Rash pustular [Unknown]
  - Skin lesion [Unknown]
  - Skin oedema [Unknown]
  - Rash [Unknown]
  - Neutrophilic dermatosis [Unknown]
